FAERS Safety Report 16408429 (Version 1)
Quarter: 2019Q2

REPORT INFORMATION
  Report Type: Spontaneous
  Country: BR (occurrence: BR)
  Receive Date: 20190610
  Receipt Date: 20190610
  Transmission Date: 20190711
  Serious: Yes (Other)
  Sender: FDA-Public Use
  Company Number: BR-AMGEN-BRASP2019091298

PATIENT
  Sex: Female

DRUGS (12)
  1. OMEPRAZOLE. [Concomitant]
     Active Substance: OMEPRAZOLE
     Dosage: 20 MILLIGRAM
     Route: 048
  2. GLIFAGE [Concomitant]
     Active Substance: METFORMIN HYDROCHLORIDE
     Dosage: 500 MILLIGRAM
     Route: 048
  3. LOSARTAN. [Concomitant]
     Active Substance: LOSARTAN
     Dosage: 12.5 MILLIGRAM
     Route: 048
  4. ENBREL [Suspect]
     Active Substance: ETANERCEPT
     Indication: PRODUCT USED FOR UNKNOWN INDICATION
     Dosage: UNK
     Route: 065
     Dates: start: 2012, end: 2017
  5. METHOTREXATE. [Concomitant]
     Active Substance: METHOTREXATE
     Dosage: 50 MILLIGRAM
     Route: 058
  6. PREDNISONE. [Concomitant]
     Active Substance: PREDNISONE
     Dosage: 5 MILLIGRAM
     Route: 048
  7. HYDROCHLOROTHIAZIDE. [Concomitant]
     Active Substance: HYDROCHLOROTHIAZIDE
     Dosage: 25 MILLIGRAM
     Route: 048
  8. TYLEX [PARACETAMOL] [Concomitant]
     Active Substance: ACETAMINOPHEN
     Dosage: 30 MILLIGRAM
     Route: 048
  9. NOVALGINA [Concomitant]
     Active Substance: METAMIZOLE SODIUM
     Dosage: 1 GRAM
     Route: 048
  10. CALCIUM CARBONATE AND VITAMIN D [Concomitant]
     Active Substance: CALCIUM CARBONATE\VITAMIN D
     Dosage: UNK
     Route: 048
  11. FOLIC ACID. [Concomitant]
     Active Substance: FOLIC ACID
     Dosage: 5 MILLIGRAM
     Route: 048
  12. OSTEOFORM [CALCIUM] [Concomitant]
     Dosage: 70 MILLIGRAM
     Route: 048

REACTIONS (2)
  - Arthralgia [Unknown]
  - Neoplasm malignant [Unknown]
